FAERS Safety Report 13843056 (Version 1)
Quarter: 2017Q3

REPORT INFORMATION
  Report Type: Spontaneous
  Country: JP (occurrence: JP)
  Receive Date: 20170808
  Receipt Date: 20170808
  Transmission Date: 20171127
  Serious: Yes (Hospitalization, Other)
  Sender: FDA-Public Use
  Company Number: JP-UCBSA-2016032523

PATIENT
  Age: 18 Year
  Sex: Female

DRUGS (2)
  1. E KEPPRA [Suspect]
     Active Substance: LEVETIRACETAM
     Indication: TEMPORAL LOBE EPILEPSY
     Dosage: UNKNOWN DOSE
     Route: 048
  2. E KEPPRA [Suspect]
     Active Substance: LEVETIRACETAM
     Dosage: ADJUSTED DOSES AND SOMETIMES THE DOSE WAS OVERDOSE
     Route: 048

REACTIONS (6)
  - Suicidal ideation [Unknown]
  - Depressed mood [Unknown]
  - Drug effect incomplete [Unknown]
  - Intentional product misuse [Unknown]
  - Central nervous system lesion [Recovered/Resolved]
  - Overdose [Unknown]
